FAERS Safety Report 10349985 (Version 1)
Quarter: 2014Q3

REPORT INFORMATION
  Report Type: Spontaneous
  Country: US (occurrence: US)
  Receive Date: 20140730
  Receipt Date: 20140730
  Transmission Date: 20150326
  Serious: No
  Sender: FDA-Public Use
  Company Number: US-GLAXOSMITHKLINE-A1046751A

PATIENT
  Sex: Male

DRUGS (8)
  1. MAGNESIUM [Concomitant]
     Active Substance: MAGNESIUM
  2. IBUPROFEN. [Suspect]
     Active Substance: IBUPROFEN
     Indication: CLUSTER HEADACHE
     Route: 065
  3. VERAPAMIL [Concomitant]
     Active Substance: VERAPAMIL HYDROCHLORIDE
  4. TYLENOL [Suspect]
     Active Substance: ACETAMINOPHEN
     Indication: CLUSTER HEADACHE
     Route: 065
  5. IMITREX [Suspect]
     Active Substance: SUMATRIPTAN\SUMATRIPTAN SUCCINATE
     Indication: CLUSTER HEADACHE
     Dosage: 2Z PER DAY
     Route: 048
  6. PREDNISONE. [Concomitant]
     Active Substance: PREDNISONE
  7. MELATONIN [Concomitant]
     Active Substance: MELATONIN
  8. SUDAFED [Suspect]
     Active Substance: PSEUDOEPHEDRINE HYDROCHLORIDE
     Indication: CLUSTER HEADACHE
     Route: 065

REACTIONS (2)
  - Drug ineffective [Unknown]
  - Cluster headache [Unknown]
